FAERS Safety Report 21087658 (Version 2)
Quarter: 2022Q3

REPORT INFORMATION
  Report Type: Spontaneous
  Country: RU (occurrence: RU)
  Receive Date: 20220715
  Receipt Date: 20220720
  Transmission Date: 20221027
  Serious: Yes (Other)
  Sender: FDA-Public Use
  Company Number: RU-GLAXOSMITHKLINE-RUCH2022024353

PATIENT

DRUGS (2)
  1. DICLOFENAC DIETHYLAMINE [Suspect]
     Active Substance: DICLOFENAC DIETHYLAMINE
     Indication: Pain
     Dosage: UNK
  2. IBUPROFEN SODIUM [Suspect]
     Active Substance: IBUPROFEN SODIUM
     Indication: Product used for unknown indication
     Dosage: UNK
     Dates: start: 2007

REACTIONS (5)
  - Oedema [Unknown]
  - Peripheral swelling [Unknown]
  - Drug ineffective [Unknown]
  - Product use issue [Unknown]
  - Product complaint [Unknown]
